FAERS Safety Report 8763149 (Version 1)
Quarter: 2012Q4

REPORT INFORMATION
  Report Type: 
  Country: US (occurrence: US)
  Receive Date: 20120831
  Receipt Date: 20120831
  Transmission Date: 20130627
  Serious: Yes (Hospitalization)
  Sender: FDA-Public Use
  Company Number: US-BAYER-2012-089426

PATIENT
  Age: 26 Year
  Sex: Female
  Weight: 83.45 kg

DRUGS (4)
  1. YASMIN [Suspect]
     Dosage: UNK
  2. OCELLA [Suspect]
     Dosage: UNK
  3. ZOLOFT [Concomitant]
     Dosage: UNK
  4. DILAUDID [Concomitant]
     Dosage: UNK

REACTIONS (1)
  - Pulmonary embolism [None]
